FAERS Safety Report 19412753 (Version 1)
Quarter: 2021Q2

REPORT INFORMATION
  Report Type: Spontaneous
  Country: US (occurrence: US)
  Receive Date: 20210614
  Receipt Date: 20210614
  Transmission Date: 20210717
  Serious: Yes (Other)
  Sender: FDA-Public Use
  Company Number: US-ORGANON-O2106USA001015

PATIENT
  Age: 69 Year
  Sex: Male

DRUGS (4)
  1. CETIRIZINE [Concomitant]
     Active Substance: CETIRIZINE HYDROCHLORIDE
     Dosage: 10MG ONCE A DAY
  2. FAMOTIDINE. [Concomitant]
     Active Substance: FAMOTIDINE
     Dosage: UNK
  3. NASONEX [Suspect]
     Active Substance: MOMETASONE FUROATE
     Indication: HYPERSENSITIVITY
     Dosage: 1 DOSAGE FORM, ONCE PER DAY: MORNING
     Route: 045
     Dates: start: 2011, end: 202004
  4. NASONEX NASAL SPRAY INHALER (DEVICE) [Suspect]
     Active Substance: DEVICE

REACTIONS (2)
  - Nasal polyps [Recovering/Resolving]
  - Cataract [Unknown]

NARRATIVE: CASE EVENT DATE: 2011
